FAERS Safety Report 9470618 (Version 3)
Quarter: 2013Q4

REPORT INFORMATION
  Report Type: Spontaneous
  Country: US (occurrence: US)
  Receive Date: 20130822
  Receipt Date: 20131010
  Transmission Date: 20140711
  Serious: Yes (Other)
  Sender: FDA-Public Use
  Company Number: US-PFIZER INC-2013239081

PATIENT
  Sex: Female

DRUGS (2)
  1. SUTENT [Suspect]
     Indication: RENAL CELL CARCINOMA
     Dosage: 50 MG, DAILY
     Route: 048
     Dates: start: 20130815
  2. SUTENT [Suspect]
     Dosage: 25 MG, DAILY
     Route: 048
     Dates: start: 20130910

REACTIONS (7)
  - Aphagia [Unknown]
  - Oral discomfort [Unknown]
  - Dysgeusia [Unknown]
  - Oedema mouth [Unknown]
  - Nausea [Unknown]
  - Paraesthesia [Unknown]
  - Palmar-plantar erythrodysaesthesia syndrome [Unknown]
